FAERS Safety Report 23841620 (Version 2)
Quarter: 2024Q2

REPORT INFORMATION
  Report Type: Spontaneous
  Country: ES (occurrence: ES)
  Receive Date: 20240510
  Receipt Date: 20240531
  Transmission Date: 20240716
  Serious: Yes (Hospitalization, Other)
  Sender: FDA-Public Use
  Company Number: ES-Accord-422960

PATIENT
  Age: 67 Year
  Sex: Male
  Weight: 65.9 kg

DRUGS (4)
  1. CISPLATIN [Suspect]
     Active Substance: CISPLATIN
     Indication: Product used for unknown indication
     Dosage: Q3W, IV DRIP
     Route: 042
     Dates: start: 20240409, end: 20240409
  2. ETOPOSIDE [Suspect]
     Active Substance: ETOPOSIDE
     Indication: Product used for unknown indication
     Dosage: Q3W, IV DRIP
     Dates: start: 20240409, end: 20240409
  3. OMEPRAZOLE [Concomitant]
     Active Substance: DONEPEZIL HYDROCHLORIDE\OMEPRAZOLE\OMEPRAZOLE MAGNESIUM
     Dosage: 20MG, ONCE EVERY 24 H
     Route: 048
     Dates: start: 20240202
  4. NYSTATIN [Concomitant]
     Active Substance: NYSTATIN
     Route: 048

REACTIONS (4)
  - Dysphagia [Recovered/Resolved]
  - Chest pain [Unknown]
  - Bicytopenia [Recovering/Resolving]
  - Aortic thrombosis [Recovering/Resolving]

NARRATIVE: CASE EVENT DATE: 20240419
